FAERS Safety Report 8923042 (Version 1)
Quarter: 2012Q4

REPORT INFORMATION
  Report Type: Spontaneous
  Country: US (occurrence: None)
  Receive Date: 20121115
  Receipt Date: 20121115
  Transmission Date: 20130627
  Serious: Yes (Other)
  Sender: FDA-Public Use
  Company Number: 2012P1060975

PATIENT
  Age: 58 Year
  Sex: Male
  Weight: 90.72 kg

DRUGS (6)
  1. GLYBURIDE [Suspect]
     Route: 048
     Dates: start: 1992, end: 20121010
  2. GLYBURIDE [Suspect]
     Route: 048
     Dates: start: 20121012
  3. ENALAPRIL [Concomitant]
  4. NADOLOL [Concomitant]
  5. MAGNESIUM [Concomitant]
  6. COQ10 [Concomitant]

REACTIONS (5)
  - Vision blurred [None]
  - Blood glucose increased [None]
  - Hypertension [None]
  - Macular oedema [None]
  - Pruritus [None]
